FAERS Safety Report 11691317 (Version 1)
Quarter: 2015Q4

REPORT INFORMATION
  Report Type: Spontaneous
  Country: US (occurrence: US)
  Receive Date: 20151102
  Receipt Date: 20151102
  Transmission Date: 20160304
  Serious: No
  Sender: FDA-Public Use
  Company Number: CHPA2015US012985

PATIENT
  Age: 80 Year
  Sex: Male

DRUGS (1)
  1. VOLTAREN [Suspect]
     Active Substance: DICLOFENAC SODIUM
     Indication: LIGAMENT SPRAIN
     Dosage: 4 G, ONCE/SINGLE
     Route: 061
     Dates: start: 20151030

REACTIONS (2)
  - Product use issue [Unknown]
  - Therapeutic response unexpected [Unknown]

NARRATIVE: CASE EVENT DATE: 20151030
